FAERS Safety Report 5139918-3 (Version None)
Quarter: 2006Q4

REPORT INFORMATION
  Report Type: 
  Country: None (occurrence: None)
  Receive Date: 20061031
  Receipt Date: 20060825
  Transmission Date: 20070319
  Serious: Yes (Death, Other)
  Sender: FDA-Public Use
  Company Number: US-ELI_LILLY_AND_COMPANY-US200608005538

PATIENT
  Age: 49 Year
  Sex: Male
  Weight: 77.097 kg

DRUGS (2)
  1. ZYPREXA [Suspect]
     Dosage: 10 MG, UNKNOWN
     Dates: start: 20010601
  2. ZYPREXA [Suspect]
     Dosage: 30 MG, UNKNOWN
     Dates: end: 20050401

REACTIONS (10)
  - APPETITE DISORDER [None]
  - BLOOD TRIGLYCERIDES INCREASED [None]
  - DEATH [None]
  - DIABETES MELLITUS [None]
  - DIABETIC COMA [None]
  - HYPERTENSION [None]
  - HYPOGLYCAEMIA [None]
  - METABOLIC DISORDER [None]
  - PRESCRIBED OVERDOSE [None]
  - VISION BLURRED [None]
